FAERS Safety Report 5732633-4 (Version None)
Quarter: 2008Q2

REPORT INFORMATION
  Report Type: 
  Country: None (occurrence: None)
  Receive Date: 20080507
  Receipt Date: 20080424
  Transmission Date: 20081010
  Serious: Yes (Hospitalization)
  Sender: FDA-Public Use
  Company Number: 233885J08USA

PATIENT
  Age: 37 Year
  Sex: Female

DRUGS (1)
  1. REBIF [Suspect]
     Indication: MULTIPLE SCLEROSIS
     Dosage: 44 MCG, 3 IN 1 WEEKS, SUBCUTANEOUS
     Route: 058
     Dates: start: 20070501

REACTIONS (6)
  - BLOOD POTASSIUM DECREASED [None]
  - MENSTRUATION IRREGULAR [None]
  - PARAESTHESIA [None]
  - THINKING ABNORMAL [None]
  - VITAMIN B12 DEFICIENCY [None]
  - VOMITING [None]
